FAERS Safety Report 15713752 (Version 2)
Quarter: 2019Q1

REPORT INFORMATION
  Report Type: Report from Study
  Country: DE (occurrence: DE)
  Receive Date: 20181212
  Receipt Date: 20190208
  Transmission Date: 20190417
  Serious: Yes (Death, Disabling, Congenital Anomaly, Other)
  Sender: FDA-Public Use
  Company Number: DE-BAYER-2015-390046

PATIENT
  Weight: .06 kg

DRUGS (23)
  1. SALBUTAMOL [Suspect]
     Active Substance: ALBUTEROL
     Dosage: GESTATIONAL WEEK 0-14
     Route: 064
  2. METAMIZOLE [Suspect]
     Active Substance: METAMIZOLE
     Dosage: GESTATIONAL WEEK 0-14
  3. PREDNISOLONE. [Suspect]
     Active Substance: PREDNISOLONE
     Dosage: 10 MG, BID, GESTATIONAL WEEK 0-14
     Route: 064
     Dates: start: 20111214, end: 20120320
  4. RITUXIMAB. [Suspect]
     Active Substance: RITUXIMAB
     Dosage: UNK, LAST TIME IN DECEMBER 2011, PRE OR PERICONCEPTIONAL
     Route: 064
  5. TACROLIMUS. [Suspect]
     Active Substance: TACROLIMUS
     Dosage: 6 MG, QD, GESTATIONAL WEEK 0-14
     Route: 064
     Dates: start: 20111214, end: 20120320
  6. LOW MOLECULAR WEIGHT HEPARIN [Suspect]
     Active Substance: UNSPECIFIED INGREDIENT
     Dosage: UNK
     Route: 064
  7. MIFEGYNE [Concomitant]
     Active Substance: MIFEPRISTONE
     Indication: ABORTION INDUCED
     Dosage: UNK, GESTATIONAL WEEK 13.6
     Route: 064
  8. CYCLOPHOSPHAMIDE. [Concomitant]
     Active Substance: CYCLOPHOSPHAMIDE
     Dosage: UNK, 3000 MG CUMULATIVE; PRECONCEPTIONAL
     Route: 064
  9. XARELTO [Suspect]
     Active Substance: RIVAROXABAN
     Dosage: GESTATIONAL WEEK 0-5
     Route: 064
  10. EZETIMIBE. [Suspect]
     Active Substance: EZETIMIBE
     Dosage: GESTATIONAL WEEK 0-14
     Route: 064
  11. PANTOPRAZOLE [Suspect]
     Active Substance: PANTOPRAZOLE
     Dosage: 40 MG, QD, GESTATIONAL WEEK 0-14
     Route: 064
     Dates: start: 20111214, end: 20120320
  12. TORASEMIDE [Suspect]
     Active Substance: TORSEMIDE
     Dosage: 100 MG, QD, GESTATIONAL WEEK 0-14
     Route: 064
     Dates: start: 20111214, end: 20120320
  13. NOVAMINSULFON [Suspect]
     Active Substance: METAMIZOLE
     Dosage: , TRIMESTER: FIRST; PROBABLY ONLY IN HOSPITAL IN WEEK 5UNK
     Route: 064
  14. DALTEPARIN SODIUM [Suspect]
     Active Substance: DALTEPARIN SODIUM
     Dosage: UNK
     Route: 064
  15. DALTEPARIN SODIUM [Suspect]
     Active Substance: DALTEPARIN SODIUM
     Dosage: GESTATIONAL WEEK 6-14
  16. CLEXANE [Suspect]
     Active Substance: ENOXAPARIN SODIUM
     Dosage: 200 MG, BID
     Route: 064
  17. ALISKIREN [Suspect]
     Active Substance: ALISKIREN
     Dosage: 300 MG, QD, GESTATIONAL WEEK 0-5
     Dates: start: 20111214, end: 20120117
  18. HYDROXYCHLOROQUINE [Suspect]
     Active Substance: HYDROXYCHLOROQUINE
     Dosage: 400 MG, QD, GESTATIONAL WEEK 0-14
     Route: 064
     Dates: end: 20120320
  19. RAMIPRIL. [Suspect]
     Active Substance: RAMIPRIL
     Dosage: 20 MG, QD, GESTATIONAL WEEK 0-13+6
     Route: 064
     Dates: start: 20111214, end: 20120320
  20. SIMVASTATIN. [Suspect]
     Active Substance: SIMVASTATIN
     Dosage: GESTATIONAL WEEK 0-14
     Route: 064
  21. NICOTINE. [Suspect]
     Active Substance: NICOTINE
     Dosage: GESTATIONAL WEEK 0-14
  22. CYTOTEC [Concomitant]
     Active Substance: MISOPROSTOL
     Indication: ABORTION INDUCED
     Dosage: UNK, GESTATIONAL WEEK 13.6
     Route: 064
     Dates: start: 20120320, end: 20120320
  23. ACETYLSALICYLIC ACID({=100 MG) [Suspect]
     Active Substance: ASPIRIN
     Dosage: 100 MG, QD, GESTATIONAL WEEK 0-14
     Route: 064
     Dates: start: 20111214, end: 20120320

REACTIONS (7)
  - Heart disease congenital [Fatal]
  - Foetal exposure during pregnancy [Fatal]
  - Truncus arteriosus persistent [Fatal]
  - Congenital cardiovascular anomaly [Fatal]
  - Cardiac septal defect [Fatal]
  - Ventricular septal defect [Fatal]
  - Low birth weight baby [Unknown]
